FAERS Safety Report 15301305 (Version 1)
Quarter: 2018Q3

REPORT INFORMATION
  Report Type: Spontaneous
  Country: US (occurrence: US)
  Receive Date: 20180821
  Receipt Date: 20180821
  Transmission Date: 20181010
  Serious: No
  Sender: FDA-Public Use
  Company Number: US-MALLINCKRODT-T201703493

PATIENT
  Age: 64 Year
  Sex: Female

DRUGS (3)
  1. OXYCODONE/ACETAMINOPHEN [Suspect]
     Active Substance: ACETAMINOPHEN\OXYCODONE HYDROCHLORIDE
     Dosage: 1.75 A DAY FOR ABOUT A WEEK (WEANING OFF THE DOSE)
     Route: 048
  2. OXYCODONE/ACETAMINOPHEN [Suspect]
     Active Substance: ACETAMINOPHEN\OXYCODONE HYDROCHLORIDE
     Indication: PRODUCT USED FOR UNKNOWN INDICATION
     Dosage: 5/325 MG, 2 TABLETS A DAY
     Route: 048
  3. OXYCODONE/ACETAMINOPHEN [Suspect]
     Active Substance: ACETAMINOPHEN\OXYCODONE HYDROCHLORIDE
     Dosage: 0.75 TABLET, EVERY WEEK LOWER BY A QUARTER OF A TABLET
     Route: 048

REACTIONS (5)
  - Headache [Unknown]
  - Feeling jittery [Unknown]
  - Diarrhoea [Unknown]
  - Wrong technique in product usage process [Unknown]
  - Withdrawal syndrome [Unknown]
